FAERS Safety Report 7221952-0 (Version None)
Quarter: 2011Q1

REPORT INFORMATION
  Report Type: 
  Country: None (occurrence: None)
  Receive Date: 20110112
  Receipt Date: 20110106
  Transmission Date: 20110831
  Serious: Yes (Other)
  Sender: FDA-Public Use
  Company Number: B0692306A

PATIENT
  Sex: Female

DRUGS (1)
  1. RELENZA [Suspect]
     Indication: H1N1 INFLUENZA
     Dosage: 20MG PER DAY
     Route: 055
     Dates: start: 20101224, end: 20101229

REACTIONS (1)
  - NEUTROPENIA [None]
